FAERS Safety Report 21923803 (Version 1)
Quarter: 2023Q1

REPORT INFORMATION
  Report Type: Spontaneous
  Country: JP (occurrence: JP)
  Receive Date: 20230130
  Receipt Date: 20230130
  Transmission Date: 20230417
  Serious: Yes (Hospitalization, Other)
  Sender: FDA-Public Use
  Company Number: JP-ONO-2022JP029015

PATIENT
  Age: 46 Year
  Sex: Male
  Weight: 56.4 kg

DRUGS (13)
  1. OPDIVO [Suspect]
     Active Substance: NIVOLUMAB
     Indication: Metastatic renal cell carcinoma
     Dosage: 240 MG, Q2W
     Route: 041
     Dates: start: 20220412
  2. OPDIVO [Suspect]
     Active Substance: NIVOLUMAB
     Route: 041
  3. OPDIVO [Suspect]
     Active Substance: NIVOLUMAB
     Route: 041
  4. OPDIVO [Suspect]
     Active Substance: NIVOLUMAB
     Route: 041
  5. OPDIVO [Suspect]
     Active Substance: NIVOLUMAB
     Route: 041
  6. OPDIVO [Suspect]
     Active Substance: NIVOLUMAB
     Route: 041
  7. OPDIVO [Suspect]
     Active Substance: NIVOLUMAB
     Route: 041
     Dates: end: 20220719
  8. CABOMETYX [Concomitant]
     Active Substance: CABOZANTINIB S-MALATE
     Indication: Metastatic renal cell carcinoma
     Dosage: 40 MG, EVERYDAY
     Route: 048
     Dates: start: 20220412, end: 20220801
  9. CORTRIL [Concomitant]
     Active Substance: HYDROCORTISONE
     Indication: Product used for unknown indication
     Dosage: 10 MG, EVERYDAY
     Route: 048
     Dates: start: 20220520, end: 20220809
  10. LEVOTHYROXINE SODIUM [Concomitant]
     Active Substance: LEVOTHYROXINE SODIUM
     Indication: Product used for unknown indication
     Dosage: 25 UG, EVERYDAY
     Route: 048
     Dates: start: 20220531
  11. FEBUXOSTAT [Concomitant]
     Active Substance: FEBUXOSTAT
     Indication: Product used for unknown indication
     Dosage: 20 MG, EVERYDAY
     Route: 048
     Dates: start: 20160801, end: 20220801
  12. FEBUXOSTAT [Concomitant]
     Active Substance: FEBUXOSTAT
     Dosage: 20 MG, EVERYDAY
     Route: 048
     Dates: start: 20220816
  13. ZINC [Concomitant]
     Active Substance: ZINC
     Indication: Product used for unknown indication
     Dosage: 50 MG, Q12H
     Route: 048
     Dates: start: 20220517, end: 20220802

REACTIONS (4)
  - Immune-mediated hepatic disorder [Recovered/Resolved]
  - Physical deconditioning [Unknown]
  - Acne [Unknown]
  - Pruritus [Unknown]

NARRATIVE: CASE EVENT DATE: 20220802
